FAERS Safety Report 9656802 (Version 2)
Quarter: 2013Q4

REPORT INFORMATION
  Report Type: Spontaneous
  Country: GB (occurrence: None)
  Receive Date: 20131028
  Receipt Date: 20131108
  Transmission Date: 20140711
  Serious: Yes (Hospitalization, Other)
  Sender: FDA-Public Use
  Company Number: AUR-APL-2013-08803

PATIENT
  Age: 67 Year
  Sex: Male

DRUGS (1)
  1. TAMSULOSIN [Suspect]
     Indication: BLADDER OBSTRUCTION
     Dates: start: 201003

REACTIONS (6)
  - Cerebrovascular accident [None]
  - Transient ischaemic attack [None]
  - Memory impairment [None]
  - Urinary tract disorder [None]
  - Refusal of treatment by patient [None]
  - Urinary incontinence [None]
